FAERS Safety Report 15245656 (Version 1)
Quarter: 2018Q3

REPORT INFORMATION
  Report Type: Spontaneous
  Country: US (occurrence: US)
  Receive Date: 20180806
  Receipt Date: 20180806
  Transmission Date: 20181010
  Serious: Yes (Death)
  Sender: FDA-Public Use
  Company Number: US-LEXICON PHARMACEUTICALS, INC-18-1606-00957

PATIENT
  Age: 87 Year
  Sex: Male
  Weight: 72.6 kg

DRUGS (24)
  1. TELOTRISTAT ETHYL [Suspect]
     Active Substance: TELOTRISTAT ETHYL
     Indication: CARCINOID SYNDROME
     Route: 048
     Dates: start: 20180623, end: 20180722
  2. ALLOPURINOL. [Concomitant]
     Active Substance: ALLOPURINOL
  3. LISINOPRIL. [Concomitant]
     Active Substance: LISINOPRIL
     Route: 048
  4. SANDOSTATIN LAR DEPOT [Concomitant]
     Active Substance: OCTREOTIDE ACETATE
     Route: 030
  5. INDOCIN [Concomitant]
     Active Substance: INDOMETHACIN
     Route: 048
  6. ANORO ELLIPTA [Concomitant]
     Active Substance: UMECLIDINIUM BROMIDE\VILANTEROL TRIFENATATE
  7. MORPHINE [Concomitant]
     Active Substance: MORPHINE
     Route: 048
  8. OCUVITE ORAL [Concomitant]
     Route: 048
  9. SAW PALMETTO [Concomitant]
     Active Substance: HERBALS\SAW PALMETTO
     Route: 048
  10. FLOMAX [Concomitant]
     Active Substance: TAMSULOSIN HYDROCHLORIDE
     Route: 048
     Dates: end: 20180718
  11. FISH OIL [Concomitant]
     Active Substance: FISH OIL
     Route: 048
  12. LEVOTHYROXINE. [Concomitant]
     Active Substance: LEVOTHYROXINE
     Route: 048
  13. ATIVAN [Concomitant]
     Active Substance: LORAZEPAM
     Indication: ANXIETY
     Route: 048
  14. ACETAMINOPHEN. [Concomitant]
     Active Substance: ACETAMINOPHEN
     Route: 048
  15. NORVASC [Concomitant]
     Active Substance: AMLODIPINE BESYLATE
     Route: 048
  16. RUXOLITINIB [Concomitant]
     Active Substance: RUXOLITINIB
     Route: 048
  17. REMERON [Concomitant]
     Active Substance: MIRTAZAPINE
     Route: 048
  18. SEREVENT DISKUS [Concomitant]
     Active Substance: SALMETEROL XINAFOATE
  19. PROSCAR [Concomitant]
     Active Substance: FINASTERIDE
  20. NEURONTIN [Concomitant]
     Active Substance: GABAPENTIN
     Route: 048
  21. PRILOSEC [Concomitant]
     Active Substance: OMEPRAZOLE MAGNESIUM
     Route: 048
  22. POTASSIUM CHLORIDE. [Concomitant]
     Active Substance: POTASSIUM CHLORIDE
     Route: 048
  23. VITAMIN B12 [Concomitant]
     Active Substance: CYANOCOBALAMIN
     Route: 048
  24. MULTIPLE VITAMIN [Concomitant]
     Active Substance: VITAMINS
     Route: 048

REACTIONS (1)
  - Death [Fatal]

NARRATIVE: CASE EVENT DATE: 20180722
